FAERS Safety Report 20300334 (Version 1)
Quarter: 2022Q1

REPORT INFORMATION
  Report Type: Spontaneous
  Country: RU (occurrence: RU)
  Receive Date: 20220105
  Receipt Date: 20220105
  Transmission Date: 20220423
  Serious: Yes (Other)
  Sender: FDA-Public Use
  Company Number: RU-GLAXOSMITHKLINE-RU2021EME263717

PATIENT
  Age: 41 Year
  Sex: Female

DRUGS (1)
  1. BELIMUMAB [Suspect]
     Active Substance: BELIMUMAB
     Indication: Systemic lupus erythematosus
     Dosage: UNK

REACTIONS (6)
  - Coronavirus infection [Unknown]
  - Lung disorder [Unknown]
  - Pyrexia [Unknown]
  - Respiratory failure [Unknown]
  - Asthenia [Unknown]
  - Pneumonia [Unknown]
